FAERS Safety Report 6569660-3 (Version None)
Quarter: 2010Q1

REPORT INFORMATION
  Report Type: 
  Country: None (occurrence: None)
  Receive Date: 20100204
  Receipt Date: 20100122
  Transmission Date: 20100710
  Serious: Yes (Hospitalization)
  Sender: FDA-Public Use
  Company Number: PHHY2010RO03621

PATIENT
  Sex: Female

DRUGS (2)
  1. ZOMETA [Suspect]
     Indication: SPINAL CORD COMPRESSION
     Dosage: 4 MG, QMO
  2. DEXAMETHASONUM [Concomitant]

REACTIONS (2)
  - OSTEONECROSIS [None]
  - PAIN IN JAW [None]
